FAERS Safety Report 10658788 (Version 1)
Quarter: 2014Q4

REPORT INFORMATION
  Report Type: Spontaneous
  Country: US (occurrence: None)
  Receive Date: 20141216
  Receipt Date: 20141216
  Transmission Date: 20150529
  Serious: No
  Sender: FDA-Public Use
  Company Number: None

PATIENT
  Age: 62 Year
  Sex: Female
  Weight: 93.9 kg

DRUGS (9)
  1. TRIAM/HYDRO [Concomitant]
  2. TYLENOL [Concomitant]
     Active Substance: ACETAMINOPHEN
  3. BENADRYL [Concomitant]
     Active Substance: DIPHENHYDRAMINE HYDROCHLORIDE
  4. FLECAINIDE [Suspect]
     Active Substance: FLECAINIDE
     Indication: DYSPNOEA
     Dosage: 1 PILL, 2X DAILY, MOUTH
     Route: 048
     Dates: start: 20141120, end: 20141128
  5. VIT. D, FOLIC ACID, VIT. B - COMPLEX [Concomitant]
     Active Substance: FOLIC ACID\VITAMINS
  6. LEVOTHYROXINE [Concomitant]
     Active Substance: LEVOTHYROXINE
  7. PRILOSEC [Concomitant]
     Active Substance: OMEPRAZOLE MAGNESIUM
  8. ATENONOL [Concomitant]
  9. FLECAINIDE [Suspect]
     Active Substance: FLECAINIDE
     Indication: HEART RATE IRREGULAR
     Dosage: 1 PILL, 2X DAILY, MOUTH
     Route: 048
     Dates: start: 20141120, end: 20141128

REACTIONS (1)
  - Constipation [None]

NARRATIVE: CASE EVENT DATE: 20141127
